FAERS Safety Report 12194774 (Version 1)
Quarter: 2016Q1

REPORT INFORMATION
  Report Type: Spontaneous
  Country: US (occurrence: None)
  Receive Date: 20160318
  Receipt Date: 20160318
  Transmission Date: 20160526
  Serious: No
  Sender: FDA-Public Use
  Company Number: None

PATIENT
  Sex: Male

DRUGS (1)
  1. GADAVIST [Suspect]
     Active Substance: GADOBUTROL

REACTIONS (10)
  - Feeling hot [None]
  - Head discomfort [None]
  - Tension headache [None]
  - Presyncope [None]
  - Contrast media allergy [None]
  - Disturbance in attention [None]
  - Fatigue [None]
  - Yawning [None]
  - Cognitive disorder [None]
  - Quality of life decreased [None]

NARRATIVE: CASE EVENT DATE: 20151022
